FAERS Safety Report 15424197 (Version 4)
Quarter: 2019Q1

REPORT INFORMATION
  Report Type: Spontaneous
  Country: US (occurrence: US)
  Receive Date: 20180925
  Receipt Date: 20190219
  Transmission Date: 20190417
  Serious: Yes (Hospitalization, Other)
  Sender: FDA-Public Use
  Company Number: US-SA-2018SA261638

PATIENT
  Age: 56 Year
  Sex: Female

DRUGS (1)
  1. AUBAGIO [Suspect]
     Active Substance: TERIFLUNOMIDE
     Indication: MULTIPLE SCLEROSIS
     Dosage: 14 MG, QD
     Route: 048
     Dates: start: 20160727

REACTIONS (5)
  - Rehabilitation therapy [Unknown]
  - Lung operation [Unknown]
  - Implantable defibrillator insertion [Unknown]
  - Pneumonia [Unknown]
  - Unevaluable event [Unknown]
